FAERS Safety Report 9719379 (Version 2)
Quarter: 2013Q4

REPORT INFORMATION
  Report Type: Spontaneous
  Country: US (occurrence: US)
  Receive Date: 20131128
  Receipt Date: 20131216
  Transmission Date: 20140711
  Serious: No
  Sender: FDA-Public Use
  Company Number: US-009507513-1311USA010686

PATIENT
  Age: 10 Year
  Sex: Male

DRUGS (1)
  1. NASONEX [Suspect]
     Route: 045

REACTIONS (1)
  - Tachycardia [Unknown]
